FAERS Safety Report 14124833 (Version 2)
Quarter: 2018Q4

REPORT INFORMATION
  Report Type: Spontaneous
  Country: CZ (occurrence: CZ)
  Receive Date: 20171025
  Receipt Date: 20181121
  Transmission Date: 20190204
  Serious: Yes (Death, Other)
  Sender: FDA-Public Use
  Company Number: CZ-GILEAD-2017-0300852

PATIENT
  Age: 3 Year
  Sex: Male

DRUGS (8)
  1. ZYDELIG [Suspect]
     Active Substance: IDELALISIB
     Indication: BURKITT^S LYMPHOMA
     Dosage: UNK
     Route: 065
     Dates: start: 201603
  2. ETOPOSIDE. [Concomitant]
     Active Substance: ETOPOSIDE
  3. IFOSFAMIDE. [Concomitant]
     Active Substance: IFOSFAMIDE
  4. RITUXIMAB. [Concomitant]
     Active Substance: RITUXIMAB
  5. IBRUTINIB [Concomitant]
     Active Substance: IBRUTINIB
     Dosage: UNK
     Dates: start: 201603
  6. VALPROIC ACID. [Concomitant]
     Active Substance: VALPROIC ACID
  7. CARBOPLATIN. [Concomitant]
     Active Substance: CARBOPLATIN
  8. CYCLOPHOSPHAMIDE. [Concomitant]
     Active Substance: CYCLOPHOSPHAMIDE

REACTIONS (2)
  - Drug ineffective for unapproved indication [Fatal]
  - Off label use [Unknown]

NARRATIVE: CASE EVENT DATE: 201603
